FAERS Safety Report 6135980-X (Version None)
Quarter: 2009Q1

REPORT INFORMATION
  Report Type: 
  Country: None (occurrence: None)
  Receive Date: 20090329
  Receipt Date: 20081211
  Transmission Date: 20090719
  Serious: Yes (Other)
  Sender: FDA-Public Use
  Company Number: US-BAUSCH-2008BL004564

PATIENT
  Age: 51 Year
  Sex: Female

DRUGS (2)
  1. LOTEMAX [Suspect]
     Indication: OCULAR HYPERAEMIA
     Route: 047
     Dates: start: 20080708, end: 20080728
  2. LOTEMAX [Suspect]
     Route: 047
     Dates: start: 20080729, end: 20080805

REACTIONS (3)
  - CATARACT [None]
  - CORNEAL DISORDER [None]
  - INTRAOCULAR PRESSURE INCREASED [None]
